FAERS Safety Report 7197247-0 (Version None)
Quarter: 2010Q4

REPORT INFORMATION
  Report Type: 
  Country: None (occurrence: None)
  Receive Date: 20101224
  Receipt Date: 20101122
  Transmission Date: 20110411
  Serious: Yes (Hospitalization, Other)
  Sender: FDA-Public Use
  Company Number: US-AMGEN-KDL249729

PATIENT

DRUGS (5)
  1. ENBREL [Suspect]
     Indication: RHEUMATOID ARTHRITIS
     Dosage: 50 MG, QWK
     Route: 058
     Dates: start: 20070701
  2. ENBREL [Suspect]
     Dosage: 50 MG, QWK
     Route: 058
     Dates: start: 20071025, end: 20101026
  3. ENBREL [Suspect]
     Dosage: 50 MG, QWK
     Route: 058
     Dates: start: 20070101
  4. ENBREL [Suspect]
     Dosage: 50 MG, QWK
     Route: 058
     Dates: start: 20070901
  5. METHOTREXATE [Concomitant]
     Dosage: UNK UNK, UNK
     Dates: start: 20060101

REACTIONS (23)
  - ARTHRALGIA [None]
  - ASTHENIA [None]
  - CHOLECYSTITIS INFECTIVE [None]
  - CHOLELITHIASIS [None]
  - COUGH [None]
  - ERYTHEMA [None]
  - FATIGUE [None]
  - HAEMOPTYSIS [None]
  - HYPERHIDROSIS [None]
  - HYPOTENSION [None]
  - LYMPH NODE PAIN [None]
  - LYMPHADENOPATHY [None]
  - PAIN IN EXTREMITY [None]
  - PLATELET COUNT DECREASED [None]
  - POLLAKIURIA [None]
  - POST PROCEDURAL COMPLICATION [None]
  - POST PROCEDURAL SWELLING [None]
  - POSTOPERATIVE FEVER [None]
  - PYREXIA [None]
  - RESPIRATORY TRACT CONGESTION [None]
  - RHEUMATOID ARTHRITIS [None]
  - SKIN LESION [None]
  - SPUTUM DISCOLOURED [None]
